FAERS Safety Report 8971041 (Version 1)
Quarter: 2012Q4

REPORT INFORMATION
  Report Type: 
  Country: US (occurrence: US)
  Receive Date: 20121218
  Receipt Date: 20121218
  Transmission Date: 20130627
  Serious: Yes (Hospitalization)
  Sender: FDA-Public Use
  Company Number: US-GENZYME-CERZ-1002741

PATIENT
  Age: 12 Year
  Sex: Female
  Weight: 38.1 kg

DRUGS (11)
  1. CEREZYME [Suspect]
     Indication: GAUCHER^S DISEASE
     Dosage: 2400 UNK, q2w (alternating with 2800 q2w)
     Route: 042
     Dates: start: 20011220
  2. CEREZYME [Suspect]
     Dosage: 2800 UNK, q2w (alternating with 2400 q2w)
     Route: 042
     Dates: start: 20011220
  3. NORMAL SALINE [Concomitant]
     Indication: PRODUCT USED FOR UNKNOWN INDICATION
  4. STERILE WATER FOR INJ. [Concomitant]
     Indication: PRODUCT USED FOR UNKNOWN INDICATION
  5. EPIPEN [Concomitant]
     Indication: PRODUCT USED FOR UNKNOWN INDICATION
  6. ELA-MAX [Concomitant]
     Indication: PRODUCT USED FOR UNKNOWN INDICATION
  7. PULMICORT [Concomitant]
     Indication: PRODUCT USED FOR UNKNOWN INDICATION
  8. ZYRTEC [Concomitant]
     Indication: PRODUCT USED FOR UNKNOWN INDICATION
  9. VITAMIN D [Concomitant]
     Indication: PRODUCT USED FOR UNKNOWN INDICATION
  10. FISH OIL [Concomitant]
     Indication: PRODUCT USED FOR UNKNOWN INDICATION
  11. ALBUTEROL SULFATE [Concomitant]
     Indication: PRODUCT USED FOR UNKNOWN INDICATION

REACTIONS (8)
  - Appendicitis perforated [Not Recovered/Not Resolved]
  - Pain [Not Recovered/Not Resolved]
  - Tenderness [Not Recovered/Not Resolved]
  - Nausea [Not Recovered/Not Resolved]
  - Vomiting [Not Recovered/Not Resolved]
  - Diarrhoea [Not Recovered/Not Resolved]
  - Malaise [Not Recovered/Not Resolved]
  - Somnolence [Not Recovered/Not Resolved]
